FAERS Safety Report 10265765 (Version 1)
Quarter: 2014Q2

REPORT INFORMATION
  Report Type: Report from Study
  Country: JP (occurrence: JP)
  Receive Date: 20140627
  Receipt Date: 20140627
  Transmission Date: 20141212
  Serious: Yes (Other)
  Sender: FDA-Public Use
  Company Number: JP-BRISTOL-MYERS SQUIBB COMPANY-21135223

PATIENT
  Age: 25 Year
  Sex: Female

DRUGS (3)
  1. ABILIFY TABS [Suspect]
     Indication: DEPRESSION
     Route: 048
     Dates: start: 20140412, end: 20140506
  2. SERTRALINE HCL [Concomitant]
     Dosage: TABLET
     Dates: start: 20140407, end: 20140506
  3. MEILAX [Concomitant]
     Dosage: ONGOING
     Dates: start: 20140422

REACTIONS (1)
  - Mania [Recovered/Resolved]
